FAERS Safety Report 17614456 (Version 1)
Quarter: 2020Q2

REPORT INFORMATION
  Report Type: Spontaneous
  Country: FR (occurrence: FR)
  Receive Date: 20200402
  Receipt Date: 20200402
  Transmission Date: 20200713
  Serious: Yes (Death, Hospitalization, Other)
  Sender: FDA-Public Use
  Company Number: FR-TEVA-2020-FR-1217622

PATIENT
  Age: 71 Year
  Sex: Male

DRUGS (32)
  1. URBANYL [Suspect]
     Active Substance: CLOBAZAM
     Dosage: 30 MILLIGRAM DAILY; 30 MG, TID
     Route: 048
  2. OMEPRAZOLE MAGNESIUM. [Suspect]
     Active Substance: OMEPRAZOLE MAGNESIUM
     Dosage: 20 MILLIGRAM DAILY; 20 MG, DAILY
     Route: 048
  3. LASIX [Suspect]
     Active Substance: FUROSEMIDE
     Dosage: 40 MILLIGRAM DAILY; 40 MG,QD
     Route: 048
  4. PIPAMPERONE [Suspect]
     Active Substance: PIPAMPERONE
     Dosage: 20 MILLIGRAM DAILY; 20 MG,QD
     Route: 048
  5. OXYGEN. [Concomitant]
     Active Substance: OXYGEN
     Dosage: UNK
  6. PARACETAMOL [Suspect]
     Active Substance: ACETAMINOPHEN
     Dosage: 400 MILLIGRAM DAILY; 200 MG, BID
     Route: 048
  7. SEREVENT DISKUS [Suspect]
     Active Substance: SALMETEROL XINAFOATE
     Dosage: 4 DOSAGE FORMS DAILY; 2 DF, BID
     Route: 065
  8. TRINITRIN [Suspect]
     Active Substance: NITROGLYCERIN
     Dosage: UNK
  9. SEREVENT DISKUS [Suspect]
     Active Substance: SALMETEROL XINAFOATE
     Dosage: 2 DOSAGE FORMS DAILY; 1 DF,BID (1 PUFF) (ONCE EVERY 12HOURS)
     Route: 045
  10. TRINITRIN [Suspect]
     Active Substance: NITROGLYCERIN
     Dosage: 10 MILLIGRAM DAILY; 10 MG,QD
     Route: 065
  11. CELEBREX [Suspect]
     Active Substance: CELECOXIB
     Dosage: UNK
     Route: 065
  12. DIACEREIN [Suspect]
     Active Substance: DIACEREIN
     Dosage: 200 MILLIGRAM DAILY; 100 MG, BID
     Route: 048
  13. DIACEREIN [Suspect]
     Active Substance: DIACEREIN
     Dosage: 100 MILLIGRAM DAILY; 50 MG, 2X/DAY (ONCE EVERY 12HOURS)
     Route: 048
  14. ZOCOR [Suspect]
     Active Substance: SIMVASTATIN
     Dosage: 20 MILLIGRAM DAILY; 20 MG,QD
     Route: 048
  15. PARACETAMOL [Suspect]
     Active Substance: ACETAMINOPHEN
     Dosage: 2000 MILLIGRAM DAILY; 1000 MG, 2X/DAY (ONCE EVERY 12HOURS)
     Route: 048
  16. ZOPICLONE [Suspect]
     Active Substance: ZOPICLONE
     Dosage: 15 MILLIGRAM DAILY; 15 MG,QD
     Route: 048
  17. ASPEGIC (ACETYLSALICYLIC ACID) [Suspect]
     Active Substance: ASPIRIN
     Dosage: 250 MILLIGRAM DAILY; 250 MG, QD
     Route: 048
  18. ALTACE [Suspect]
     Active Substance: RAMIPRIL
     Dosage: 5 MILLIGRAM DAILY; 5 MG,QD
     Route: 048
  19. ESOMEPRAZOLE MAGNESIUM. [Suspect]
     Active Substance: ESOMEPRAZOLE MAGNESIUM
     Dosage: 20 MILLIGRAM DAILY; 20 MG, QD
     Route: 048
  20. PROPRANOLOL HYDROCHLORIDE. [Suspect]
     Active Substance: PROPRANOLOL HYDROCHLORIDE
     Dosage: 20 MILLIGRAM DAILY; 20 MG,QD
     Route: 048
  21. DETURGYLONE [PREDNAZOLINE] [Suspect]
     Active Substance: PREDNAZOLINE
     Dosage: 1 DOSAGE FORMS DAILY; 1 DF, QD
     Route: 065
  22. TRINITRIN [Suspect]
     Active Substance: NITROGLYCERIN
     Dosage: 10 MILLIGRAM DAILY; 10 MG, DAILY
     Route: 048
  23. MACOGROL [Suspect]
     Active Substance: POLYETHYLENE GLYCOLS
     Dosage: 2 DOSAGE FORMS DAILY; 2 DF,QD
     Route: 065
  24. TRIHEXYPHENIDYL HYDROCHLORIDE. [Suspect]
     Active Substance: TRIHEXYPHENIDYL HYDROCHLORIDE
     Dosage: 1 MILLIGRAM DAILY; 1 MG, QD
     Route: 048
  25. OMEPRAZOLE MAGNESIUM. [Suspect]
     Active Substance: OMEPRAZOLE MAGNESIUM
     Dosage: 20 MILLIGRAM DAILY; 20 MG,QD
     Route: 048
  26. PARACETAMOL [Suspect]
     Active Substance: ACETAMINOPHEN
     Dosage: 200 MILLIGRAM DAILY; 100 MG, BID (ONCE EVERY 12HOURS)
     Route: 048
  27. MIANSERIN HYDROCHLORIDE [Suspect]
     Active Substance: MIANSERIN HYDROCHLORIDE
     Dosage: 60 MILLIGRAM DAILY; 60 MG,QD
     Route: 048
  28. VENTOLINE [SALBUTAMOL SULFATE] [Suspect]
     Active Substance: ALBUTEROL SULFATE
     Dosage: UNK
     Route: 045
  29. ISOPTIN [Suspect]
     Active Substance: VERAPAMIL HYDROCHLORIDE
     Dosage: 240 MILLIGRAM DAILY; 240 MG,QD
     Route: 048
  30. ASPEGIC (ACETYLSALICYLIC ACID) [Suspect]
     Active Substance: ASPIRIN
     Dosage: 20 MILLIGRAM DAILY; 20 MG,QD
     Route: 048
  31. RIVOTRIL [Suspect]
     Active Substance: CLONAZEPAM
     Dosage: 4 MILLIGRAM DAILY; 4 MG,QD
     Route: 048
  32. URBANYL [Suspect]
     Active Substance: CLOBAZAM
     Dosage: 30 MILLIGRAM DAILY; 10 MG, 3X/DAY (ONCE EVERY 8HOURS)
     Route: 048

REACTIONS (13)
  - Respiratory distress [Fatal]
  - Cerebrovascular accident [Fatal]
  - Product use issue [Fatal]
  - Hemiplegia [Fatal]
  - Facial paralysis [Fatal]
  - Ischaemic stroke [Fatal]
  - Areflexia [Fatal]
  - Brain scan abnormal [Fatal]
  - Cerebral artery thrombosis [Fatal]
  - Respiratory failure [Fatal]
  - Disease recurrence [Fatal]
  - Off label use [Fatal]
  - Nausea [Fatal]
